FAERS Safety Report 4794368-4 (Version None)
Quarter: 2005Q4

REPORT INFORMATION
  Report Type: 
  Country: None (occurrence: None)
  Receive Date: 20051006
  Receipt Date: 20050321
  Transmission Date: 20060501
  Serious: Yes (Hospitalization, Other)
  Sender: FDA-Public Use
  Company Number: 17360

PATIENT
  Age: 69 Year
  Sex: Female
  Weight: 65.318 kg

DRUGS (1)
  1. LEUCOVORIN CALCIUM [Suspect]
     Indication: BILIARY NEOPLASM
     Dosage: 25MG/M2 IV QD X5
     Route: 042
     Dates: start: 20050228, end: 20050304

REACTIONS (2)
  - MUCOSAL INFLAMMATION [None]
  - STOMATITIS [None]
